FAERS Safety Report 7540970 (Version 6)
Quarter: 2012Q4

REPORT INFORMATION
  Report Type: Report from Study
  Country: JP (occurrence: JP)
  Receive Date: 20100813
  Receipt Date: 20120912
  Transmission Date: 20130627
  Serious: Yes (Hospitalization)
  Sender: FDA-Public Use
  Company Number: JP-ABBOTT-10P-087-0662668-00

PATIENT
  Age: 30 Year
  Sex: Female

DRUGS (2)
  1. LUPRON DEPOT [Suspect]
     Indication: BREAST CANCER
     Route: 058
     Dates: start: 20061225, end: 20080811
  2. NOLVADEX [Concomitant]
     Indication: BREAST CANCER
     Route: 048
     Dates: start: 20061225, end: 20100807

REACTIONS (5)
  - Thrombotic thrombocytopenic purpura [Recovering/Resolving]
  - Hepatic steatosis [Not Recovered/Not Resolved]
  - Hot flush [Not Recovered/Not Resolved]
  - Nasopharyngitis [Recovered/Resolved]
  - Dental caries [Recovered/Resolved]
